FAERS Safety Report 7184006-8 (Version None)
Quarter: 2010Q4

REPORT INFORMATION
  Report Type: 
  Country: None (occurrence: None)
  Receive Date: 20101222
  Receipt Date: 20101209
  Transmission Date: 20110411
  Serious: Yes (Hospitalization)
  Sender: FDA-Public Use
  Company Number: NL-GENENTECH-308783

PATIENT
  Sex: Male
  Weight: 80 kg

DRUGS (20)
  1. RITUXIMAB [Suspect]
     Indication: DIFFUSE LARGE B-CELL LYMPHOMA
     Dosage: 750 MG, UNK
     Route: 042
     Dates: start: 20100927
  2. RITUXIMAB [Suspect]
     Dosage: 750 MG, UNK
     Route: 042
     Dates: start: 20101116
  3. RITUXIMAB [Suspect]
     Dosage: 750 UNK, UNK
     Route: 042
     Dates: start: 20101130
  4. PREDNISONE [Suspect]
     Indication: DIFFUSE LARGE B-CELL LYMPHOMA
     Dosage: 100 MG, UNK
     Route: 048
     Dates: start: 20100927
  5. PREDNISONE [Suspect]
     Dosage: 10 MG, UNK
     Route: 048
     Dates: start: 20101116
  6. PREDNISONE [Suspect]
     Dosage: 100 MG, UNK
     Route: 048
     Dates: start: 20101130
  7. CYCLOPHOSPHAMIDE [Suspect]
     Indication: DIFFUSE LARGE B-CELL LYMPHOMA
     Dosage: 1650 MG, UNK
     Route: 042
     Dates: start: 20100927
  8. CYCLOPHOSPHAMIDE [Suspect]
     Dosage: 1575 MG, UNK
     Route: 042
     Dates: start: 20101011
  9. CYCLOPHOSPHAMIDE [Suspect]
     Dosage: 1575 MG, UNK
     Route: 042
     Dates: start: 20101116
  10. CYCLOPHOSPHAMIDE [Suspect]
     Dosage: 1500 MG, UNK
     Route: 042
     Dates: start: 20101130
  11. DOXORUBICIN HCL [Suspect]
     Indication: DIFFUSE LARGE B-CELL LYMPHOMA
     Dosage: 110 MG, UNK
     Route: 042
     Dates: start: 20100927
  12. DOXORUBICIN HCL [Suspect]
     Dosage: 105 MG, UNK
     Route: 042
     Dates: start: 20101011
  13. DOXORUBICIN HCL [Suspect]
     Dosage: 105 MG, UNK
     Route: 042
     Dates: start: 20101116
  14. DOXORUBICIN HCL [Suspect]
     Dosage: 100 MG, UNK
     Route: 042
     Dates: start: 20101130
  15. VINCRISTINE [Suspect]
     Indication: DIFFUSE LARGE B-CELL LYMPHOMA
     Dosage: 2 MG, UNK
     Route: 042
     Dates: start: 20100927
  16. VINCRISTINE [Suspect]
     Dosage: 2 MG, UNK
     Route: 042
     Dates: start: 20101116
  17. VINCRISTINE [Suspect]
     Dosage: 2 MG, UNK
     Route: 042
     Dates: start: 20101130
  18. NEUPOGEN [Suspect]
     Indication: DIFFUSE LARGE B-CELL LYMPHOMA
     Dosage: 6 MG, UNK
     Route: 058
     Dates: start: 20100928
  19. NEUPOGEN [Suspect]
     Dosage: 6 MG, UNK
     Route: 058
     Dates: start: 20101117
  20. NEUPOGEN [Suspect]
     Dosage: 6 MG, UNK
     Route: 058
     Dates: start: 20101201

REACTIONS (2)
  - FEBRILE NEUTROPENIA [None]
  - PLEURAL EFFUSION [None]
